FAERS Safety Report 8326986-0 (Version None)
Quarter: 2012Q2

REPORT INFORMATION
  Report Type: 
  Country: None (occurrence: None)
  Receive Date: 20120501
  Receipt Date: 20120425
  Transmission Date: 20120825
  Serious: Yes (Death, Hospitalization)
  Sender: FDA-Public Use
  Company Number: GB-ROCHE-1007802

PATIENT
  Sex: Female

DRUGS (6)
  1. BISOPROLOL FUMARATE [Concomitant]
     Indication: ATRIAL FIBRILLATION
  2. LISINOPRIL [Concomitant]
     Indication: HYPERTENSION
  3. SIMVASTATIN [Concomitant]
     Indication: LIPIDS INCREASED
  4. ASPIRIN [Concomitant]
     Indication: HYPERTENSION
  5. LUCENTIS [Suspect]
     Indication: PRODUCT USED FOR UNKNOWN INDICATION
     Route: 050
  6. SIMVASTATIN [Concomitant]
     Indication: HYPERTENSION

REACTIONS (2)
  - CEREBELLAR INFARCTION [None]
  - ATRIAL FIBRILLATION [None]
